FAERS Safety Report 9230143 (Version 2)
Quarter: 2014Q1

REPORT INFORMATION
  Report Type: Spontaneous
  Country: US (occurrence: US)
  Receive Date: 20130415
  Receipt Date: 20140306
  Transmission Date: 20141002
  Serious: Yes (Hospitalization)
  Sender: FDA-Public Use
  Company Number: US-BAYER-2013-047001

PATIENT
  Age: 18 Year
  Sex: Female
  Weight: 57.14 kg

DRUGS (7)
  1. YAZ [Suspect]
     Dosage: UNK
     Dates: start: 201001, end: 20111202
  2. BEYAZ [Suspect]
     Dosage: UNK
     Dates: start: 201001, end: 20111202
  3. OCELLA [Suspect]
     Dosage: UNK
     Dates: start: 201001, end: 20111202
  4. YASMIN [Suspect]
     Dosage: UNK
     Dates: start: 201001, end: 20111202
  5. CEFDINIR [Concomitant]
     Dosage: 300 MG, UNK
     Dates: start: 20111016
  6. VALACICLOVIR [Concomitant]
     Dosage: 1 G, UNK
     Dates: start: 20111006
  7. HYDROCODONE W/ACETAMINOPHEN [Concomitant]
     Dosage: 5-325 MG, UNK
     Dates: start: 20111116

REACTIONS (7)
  - Deep vein thrombosis [None]
  - Injury [None]
  - Pain [None]
  - Emotional distress [None]
  - General physical health deterioration [None]
  - Anxiety [None]
  - Pain [None]
